FAERS Safety Report 6432338-0 (Version None)
Quarter: 2009Q4

REPORT INFORMATION
  Report Type: 
  Country: None (occurrence: None)
  Receive Date: 20091105
  Receipt Date: 20091022
  Transmission Date: 20100525
  Serious: Yes (Other)
  Sender: FDA-Public Use
  Company Number: 1000009794

PATIENT
  Age: 44 Year
  Sex: Female

DRUGS (4)
  1. ESCITALOPRAM [Suspect]
     Dosage: 20 MG (20 MG,1 IN 1 D),ORAL
     Route: 048
  2. LEXOMIL [Suspect]
     Dosage: 12 MG (12 MG,1 IN 1 D),ORAL
     Route: 048
  3. LOXAPINE [Concomitant]
  4. MEPROBAMATE [Concomitant]

REACTIONS (4)
  - ANXIETY [None]
  - DEPRESSION [None]
  - DRUG DEPENDENCE [None]
  - SLEEP DISORDER [None]
